FAERS Safety Report 15570053 (Version 2)
Quarter: 2018Q4

REPORT INFORMATION
  Report Type: Spontaneous
  Country: JP (occurrence: JP)
  Receive Date: 20181031
  Receipt Date: 20181204
  Transmission Date: 20190205
  Serious: Yes (Other)
  Sender: FDA-Public Use
  Company Number: JP-MYLANLABS-15X-087-1236069-00

PATIENT
  Age: 40 Year
  Sex: Female
  Weight: 54.4 kg

DRUGS (8)
  1. MECOBALAMIN [Concomitant]
     Active Substance: METHYLCOBALAMIN
     Indication: CHRONIC SINUSITIS
  2. CARBOCYSTEINE [Concomitant]
     Active Substance: CARBOCYSTEINE
     Indication: CHRONIC SINUSITIS
  3. LEVOCETIRIZINE HYDROCHLORIDE [Concomitant]
     Active Substance: LEVOCETIRIZINE HYDROCHLORIDE
     Indication: CHRONIC SINUSITIS
  4. CLARITH [Suspect]
     Active Substance: CLARITHROMYCIN
     Indication: CHRONIC SINUSITIS
     Dosage: 200MILLIGRAM
     Route: 065
  5. BETAMETHASONE MYLAN [Interacting]
     Active Substance: BETAMETHASONE
     Dosage: 0.1%: DAILY DOSE: 12 DROPS
     Route: 045
  6. HYDROCORTISONE. [Concomitant]
     Active Substance: HYDROCORTISONE
     Indication: PRODUCT USED FOR UNKNOWN INDICATION
     Dosage: GRADUALLY DECREASED AND AFTER 4 MONTHS TERMINATED
  7. BETAMETHASONE MYLAN [Interacting]
     Active Substance: BETAMETHASONE
     Indication: CHRONIC SINUSITIS
     Dosage: 0.1%: DAILY DOSE: 6 DROPS
     Route: 045
  8. PRONASE [Concomitant]
     Active Substance: PROTEASE
     Indication: CHRONIC SINUSITIS

REACTIONS (2)
  - Cushing^s syndrome [Recovered/Resolved]
  - Drug interaction [Recovered/Resolved]
